FAERS Safety Report 7205389-6 (Version None)
Quarter: 2010Q4

REPORT INFORMATION
  Report Type: 
  Country: None (occurrence: None)
  Receive Date: 20101231
  Receipt Date: 20101223
  Transmission Date: 20110411
  Serious: No
  Sender: FDA-Public Use
  Company Number: US-PFIZER INC-2010174101

PATIENT
  Sex: Male
  Weight: 136 kg

DRUGS (4)
  1. NEURONTIN [Suspect]
     Indication: NEURALGIA
     Dosage: 300 MG, 3X/DAY
     Route: 048
     Dates: start: 20050101
  2. METOPROLOL TARTRATE [Suspect]
     Indication: HYPERTENSION
     Dosage: 25 MG, 2X/DAY
     Route: 048
     Dates: start: 20080101
  3. METFORMIN [Concomitant]
     Indication: DIABETES MELLITUS
     Dosage: UNK
  4. GLUCOTROL [Concomitant]
     Indication: DIABETES MELLITUS
     Dosage: UNK

REACTIONS (8)
  - ANXIETY [None]
  - CONFUSIONAL STATE [None]
  - DEPRESSION [None]
  - DRUG DOSE OMISSION [None]
  - HEADACHE [None]
  - PANIC REACTION [None]
  - SEXUAL DYSFUNCTION [None]
  - WITHDRAWAL SYNDROME [None]
